FAERS Safety Report 7488082-4 (Version None)
Quarter: 2011Q2

REPORT INFORMATION
  Report Type: 
  Country: None (occurrence: None)
  Receive Date: 20110518
  Receipt Date: 20110513
  Transmission Date: 20111010
  Serious: Yes (Other)
  Sender: FDA-Public Use
  Company Number: US-PFIZER INC-2011103708

PATIENT
  Sex: Female

DRUGS (4)
  1. ANASTROZOLE [Concomitant]
     Dosage: UNK
  2. FEMARA [Concomitant]
     Dosage: UNK
  3. HYDROCHLOROTHIAZIDE [Concomitant]
     Dosage: UNK
  4. ZITHROMAX [Suspect]
     Dosage: UNK

REACTIONS (2)
  - ANOSMIA [None]
  - AGEUSIA [None]
